FAERS Safety Report 5613103-0 (Version None)
Quarter: 2008Q1

REPORT INFORMATION
  Report Type: 
  Country: None (occurrence: None)
  Receive Date: 20080204
  Receipt Date: 20080123
  Transmission Date: 20080703
  Serious: Yes (Other)
  Sender: FDA-Public Use
  Company Number: US-PFIZER INC-2008008970

PATIENT
  Sex: Female
  Weight: 86.363 kg

DRUGS (12)
  1. CHANTIX [Suspect]
     Indication: SMOKING CESSATION THERAPY
     Dates: start: 20071101, end: 20071101
  2. METHADONE HCL [Suspect]
     Indication: DRUG DEPENDENCE
  3. ALL OTHER THERAPEUTIC PRODUCTS [Suspect]
  4. ADVAIR DISKUS 100/50 [Concomitant]
     Indication: ASTHMA
  5. ALBUTEROL [Concomitant]
     Indication: ASTHMA
  6. TRAZODONE HCL [Concomitant]
     Indication: SLEEP DISORDER
  7. VITAMINS [Concomitant]
  8. DOXYCYCLINE [Concomitant]
  9. PREDNISONE TAB [Concomitant]
  10. COLACE [Concomitant]
     Indication: CONSTIPATION
  11. CLINDAMYCIN HCL [Concomitant]
     Indication: ACNE
  12. ZANTAC [Concomitant]

REACTIONS (5)
  - ABDOMINAL PAIN [None]
  - HEPATITIS C [None]
  - NAUSEA [None]
  - VOMITING [None]
  - WEIGHT INCREASED [None]
